FAERS Safety Report 16945600 (Version 3)
Quarter: 2019Q4

REPORT INFORMATION
  Report Type: Report from Study
  Country: None (occurrence: NL)
  Receive Date: 20191022
  Receipt Date: 20191224
  Transmission Date: 20200122
  Serious: Yes (Hospitalization)
  Sender: FDA-Public Use
  Company Number: NL-ABBVIE-19K-114-2970379-00

PATIENT
  Age: 52 Year
  Sex: Male

DRUGS (2)
  1. DUODOPA [Suspect]
     Active Substance: CARBIDOPA\LEVODOPA
     Indication: PARKINSON^S DISEASE
     Dosage: DAY PUMP: MD 3.5, CDD 4.2, EDD 1.8, NIGH TPUMP MD 0.0, CDN 2.1, EDN 1.9
     Route: 050
     Dates: start: 20191007, end: 20191016
  2. NEUPRO [Concomitant]
     Active Substance: ROTIGOTINE
     Indication: PARKINSON^S DISEASE
     Route: 062
     Dates: start: 20191016

REACTIONS (5)
  - Computerised tomogram abnormal [Unknown]
  - Chest X-ray abnormal [Unknown]
  - Stoma site discharge [Recovering/Resolving]
  - Abdominal pain [Recovered/Resolved]
  - Stoma complication [Recovering/Resolving]

NARRATIVE: CASE EVENT DATE: 201910
